FAERS Safety Report 24602370 (Version 1)
Quarter: 2024Q4

REPORT INFORMATION
  Report Type: Spontaneous
  Country: PL (occurrence: PL)
  Receive Date: 20241111
  Receipt Date: 20241111
  Transmission Date: 20250115
  Serious: Yes (Hospitalization, Other)
  Sender: TEVA
  Company Number: None

PATIENT
  Age: 71 Year
  Sex: Female
  Weight: 75 kg

DRUGS (6)
  1. DICLOFENAC [Suspect]
     Active Substance: DICLOFENAC
     Indication: Sciatica
     Dosage: THE DRUG HAS BEEN USED FOR APPROXIMATELY 2 WEEKS BEFORE HOSPITALIZATION, OLFEN UNO
     Route: 048
  2. BUPRENORPHINE [Concomitant]
     Active Substance: BUPRENORPHINE
     Indication: Sciatica
     Dosage: THE DRUG HAS BEEN USED FOR APPROXIMATELY 2 WEEKS BEFORE HOSPITALIZATION; THE PATIENT USED ONLY 2 ...
     Route: 003
  3. DICLOFENAC [Suspect]
     Active Substance: DICLOFENAC
     Indication: Sciatica
     Dosage: THE DRUG HAS BEEN USED FOR APPROXIMATELY 2 WEEKS BEFORE HOSPITALIZATION, DICLAC
     Route: 048
  4. TIZANIDINE [Suspect]
     Active Substance: TIZANIDINE
     Indication: Sciatica
     Dosage: THE DRUG HAS BEEN USED FOR APPROXIMATELY 2 WEEKS BEFORE HOSPITALIZATION
     Route: 048
  5. MELOXICAM [Suspect]
     Active Substance: MELOXICAM
     Indication: Sciatica
     Dosage: THE DRUG HAS BEEN USED FOR APPROXIMATELY 2 WEEKS BEFORE HOSPITALIZATION
     Route: 048
  6. ACETAMINOPHEN\TRAMADOL HYDROCHLORIDE [Concomitant]
     Active Substance: ACETAMINOPHEN\TRAMADOL HYDROCHLORIDE
     Indication: Sciatica
     Dosage: THE DRUG HAS BEEN USED FOR APPROXIMATELY 2 WEEKS BEFORE HOSPITALIZATION, PALGOTAL 75 MG + 650 MG
     Route: 048

REACTIONS (6)
  - Duodenal ulcer [Unknown]
  - Presyncope [Recovered/Resolved]
  - Faeces discoloured [Recovered/Resolved]
  - Upper gastrointestinal haemorrhage [Recovered/Resolved]
  - Heart rate increased [Recovered/Resolved]
  - Diarrhoea [Recovered/Resolved]

NARRATIVE: CASE EVENT DATE: 20240623
